FAERS Safety Report 23576605 (Version 3)
Quarter: 2025Q2

REPORT INFORMATION
  Report Type: Spontaneous
  Country: US (occurrence: US)
  Receive Date: 20240228
  Receipt Date: 20250510
  Transmission Date: 20250717
  Serious: Yes (Life-Threatening, Hospitalization, Other)
  Sender: SANOFI AVENTIS
  Company Number: US-SA-SAC20240222000913

PATIENT
  Sex: Male
  Weight: 118.18 kg

DRUGS (1)
  1. DUPIXENT [Suspect]
     Active Substance: DUPILUMAB
     Indication: Eosinophilic oesophagitis
     Dosage: 300 MG, QW
     Route: 058

REACTIONS (3)
  - Oesophageal rupture [Unknown]
  - Eosinophilic oesophagitis [Unknown]
  - Incorrect product administration duration [Unknown]
